FAERS Safety Report 6543091-4 (Version None)
Quarter: 2010Q1

REPORT INFORMATION
  Report Type: 
  Country: None (occurrence: None)
  Receive Date: 20100120
  Receipt Date: 20100108
  Transmission Date: 20100710
  Serious: Yes (Hospitalization, Other)
  Sender: FDA-Public Use
  Company Number: PHHY2008BR01089

PATIENT
  Sex: Female
  Weight: 78 kg

DRUGS (7)
  1. FORASEQ [Suspect]
     Indication: ASTHMA
     Dosage: FORMETEROL + BUDESONIDE, 1 CAPSULE EACH, BID
  2. FORASEQ [Suspect]
     Dosage: FORMOTEROL + BUDESONIDE,1CAPSULE EACH, TID.
     Dates: end: 20100108
  3. ALDOMET [Suspect]
     Indication: HYPERTENSION
     Dosage: 500 MG, UNK
  4. HYDROCHLOROTHIAZIDE [Concomitant]
     Indication: HYPERTENSION
     Dosage: 20 MG, QD
     Route: 048
  5. CAPTOPRIL [Concomitant]
     Indication: HYPERTENSION
     Dosage: 25 MG, QD
     Route: 048
  6. LORATADINE [Concomitant]
     Indication: HYPERSENSITIVITY
     Dosage: 1 TABLET EVERY ALTERNATE DAY
     Route: 048
  7. COLLYRIUM [Concomitant]

REACTIONS (10)
  - ASTHMA [None]
  - BLOOD PRESSURE INCREASED [None]
  - BLOOD PRESSURE SYSTOLIC INCREASED [None]
  - BRONCHITIS [None]
  - COUGH [None]
  - DIZZINESS [None]
  - GENERALISED ERYTHEMA [None]
  - HYPERSENSITIVITY [None]
  - RASH PAPULAR [None]
  - TREATMENT NONCOMPLIANCE [None]
